FAERS Safety Report 22047933 (Version 1)
Quarter: 2023Q1

REPORT INFORMATION
  Report Type: Spontaneous
  Country: DE (occurrence: DE)
  Receive Date: 20230301
  Receipt Date: 20230301
  Transmission Date: 20230417
  Serious: Yes (Other)
  Sender: FDA-Public Use
  Company Number: DE-EMBRYOTOX-202118624

PATIENT
  Age: 1 Day
  Sex: Female
  Weight: 3.17 kg

DRUGS (3)
  1. VENLAFAXINE [Suspect]
     Active Substance: VENLAFAXINE HYDROCHLORIDE
     Indication: Panic disorder
     Dosage: 150 [MG/D ]/ UNTIL GW 6+1 150 MG/D, THEN 75 MG/D
     Route: 064
     Dates: start: 20211002, end: 20220705
  2. LEVOTHYROXINE SODIUM [Concomitant]
     Active Substance: LEVOTHYROXINE SODIUM
     Indication: Hypothyroidism
     Dosage: 75 MICROGRAM PER DECILITRE
     Route: 064
     Dates: start: 20220510, end: 20220705
  3. PROGESTERONE [Concomitant]
     Active Substance: PROGESTERONE
     Indication: Prophylaxis of abortion
     Dosage: UNK (UNKNOWN WHEN STARTED, PAUSED AROUND GW 7+3)
     Route: 064
     Dates: start: 20211002, end: 20220705

REACTIONS (8)
  - Opisthotonus [Recovered/Resolved]
  - Neonatal asphyxia [Recovered/Resolved]
  - Selective eating disorder [Recovered/Resolved]
  - Bradycardia neonatal [Recovered/Resolved]
  - Hypotonia neonatal [Recovered/Resolved]
  - Cyanosis neonatal [Recovered/Resolved]
  - Respiratory disorder neonatal [Recovered/Resolved]
  - Foetal exposure during pregnancy [Unknown]

NARRATIVE: CASE EVENT DATE: 20220701
